FAERS Safety Report 6031216-9 (Version None)
Quarter: 2009Q1

REPORT INFORMATION
  Report Type: 
  Country: None (occurrence: None)
  Receive Date: 20090108
  Receipt Date: 20081229
  Transmission Date: 20090719
  Serious: Yes (Other)
  Sender: FDA-Public Use
  Company Number: GB-BAXTER-2009BH000006

PATIENT
  Sex: Male

DRUGS (1)
  1. SODIUM LACTATE 1/6 MOLAR [Suspect]
     Indication: DRUG USE FOR UNKNOWN INDICATION
     Route: 042

REACTIONS (2)
  - BLOOD PRESSURE DECREASED [None]
  - HYPERSENSITIVITY [None]
